FAERS Safety Report 15325719 (Version 1)
Quarter: 2018Q3

REPORT INFORMATION
  Report Type: Spontaneous
  Country: US (occurrence: US)
  Receive Date: 20180828
  Receipt Date: 20180828
  Transmission Date: 20181010
  Serious: No
  Sender: FDA-Public Use
  Company Number: US-ELI_LILLY_AND_COMPANY-US201808012062

PATIENT
  Age: 25 Year
  Sex: Male

DRUGS (1)
  1. ZYPREXA [Suspect]
     Active Substance: OLANZAPINE
     Indication: HALLUCINATION
     Dosage: UNK UNK, UNKNOWN
     Route: 048
     Dates: start: 2010

REACTIONS (7)
  - Feeling abnormal [Recovered/Resolved]
  - Drug withdrawal syndrome [Unknown]
  - Dependence [Not Recovered/Not Resolved]
  - Pruritus [Recovered/Resolved]
  - Metabolic disorder [Not Recovered/Not Resolved]
  - Increased appetite [Not Recovered/Not Resolved]
  - Gynaecomastia [Not Recovered/Not Resolved]
